FAERS Safety Report 7443160-0 (Version None)
Quarter: 2011Q2

REPORT INFORMATION
  Report Type: 
  Country: None (occurrence: None)
  Receive Date: 20110428
  Receipt Date: 20110422
  Transmission Date: 20111010
  Serious: Yes (Hospitalization)
  Sender: FDA-Public Use
  Company Number: A0924233A

PATIENT
  Age: 61 Year
  Sex: Male

DRUGS (8)
  1. LOPID [Concomitant]
  2. LISINOPRIL [Concomitant]
  3. SIMVASTATIN [Concomitant]
  4. VITAMIN TAB [Concomitant]
  5. COREG CR [Suspect]
     Dosage: 40MG PER DAY
     Route: 048
     Dates: start: 20070801
  6. ASPIRIN [Concomitant]
  7. SINEMET [Concomitant]
  8. LEVOTHYROXINE SODIUM [Concomitant]

REACTIONS (2)
  - VENTRICULAR TACHYCARDIA [None]
  - DIZZINESS [None]
